FAERS Safety Report 11772354 (Version 2)
Quarter: 2015Q4

REPORT INFORMATION
  Report Type: Report from Study
  Country: US (occurrence: US)
  Receive Date: 20151124
  Receipt Date: 20151228
  Transmission Date: 20160304
  Serious: Yes (Other)
  Sender: FDA-Public Use
  Company Number: PHEH2015US024586

PATIENT
  Sex: Female

DRUGS (1)
  1. GILENYA [Suspect]
     Active Substance: FINGOLIMOD HYDROCHLORIDE
     Indication: MULTIPLE SCLEROSIS
     Dosage: 0.5 MG, QD
     Route: 048
     Dates: start: 20150921

REACTIONS (6)
  - Gait disturbance [Recovered/Resolved]
  - Monoplegia [Unknown]
  - Central nervous system lesion [Unknown]
  - Speech disorder [Recovered/Resolved]
  - Slow speech [Unknown]
  - Paralysis [Unknown]
